FAERS Safety Report 14666644 (Version 1)
Quarter: 2018Q1

REPORT INFORMATION
  Report Type: Spontaneous
  Country: FR (occurrence: FR)
  Receive Date: 20180322
  Receipt Date: 20180322
  Transmission Date: 20180509
  Serious: Yes (Hospitalization)
  Sender: FDA-Public Use
  Company Number: FR-CIPLA LTD.-2018FR11828

PATIENT

DRUGS (6)
  1. ATROPINE. [Suspect]
     Active Substance: ATROPINE
     Indication: PREMEDICATION
     Dosage: 0.25 MG, UNK
     Route: 058
     Dates: start: 20171219, end: 20171219
  2. OXALIPLATINE [Concomitant]
     Active Substance: OXALIPLATIN
     Indication: COLON CANCER RECURRENT
     Dosage: 260 MG, UNK
     Route: 042
     Dates: start: 20171219, end: 20171219
  3. ONDANSETRON [Concomitant]
     Active Substance: ONDANSETRON
     Indication: PREMEDICATION
     Dosage: 8 MG, UNK
     Route: 042
     Dates: start: 20171219, end: 20171219
  4. IRINOTECAN [Suspect]
     Active Substance: IRINOTECAN
     Indication: COLON CANCER RECURRENT
     Dosage: 260 MG, UNK
     Route: 042
     Dates: start: 20171219, end: 20171219
  5. METHYLPREDNISOLONE. [Concomitant]
     Active Substance: METHYLPREDNISOLONE
     Indication: PREMEDICATION
     Dosage: 60 MG, UNK
     Route: 042
     Dates: start: 20171219, end: 20171219
  6. LEVOFOLINATE                       /06682101/ [Suspect]
     Active Substance: LEVOLEUCOVORIN
     Indication: ADJUVANT THERAPY
     Dosage: 344 MG, UNK
     Route: 042
     Dates: start: 20171219, end: 20171219

REACTIONS (2)
  - Oral dysaesthesia [Recovered/Resolved]
  - Speech disorder [Recovered/Resolved]

NARRATIVE: CASE EVENT DATE: 20171219
